FAERS Safety Report 21634207 (Version 1)
Quarter: 2022Q4

REPORT INFORMATION
  Report Type: Report from Study
  Country: US (occurrence: None)
  Receive Date: 20221123
  Receipt Date: 20221123
  Transmission Date: 20230112
  Serious: Yes (Hospitalization, Other)
  Sender: FDA-Public Use
  Company Number: 2022A380674

PATIENT
  Sex: Female

DRUGS (2)
  1. TAGRISSO [Suspect]
     Active Substance: OSIMERTINIB
     Indication: Metastases to central nervous system
     Route: 048
     Dates: start: 20221005
  2. VIMPAT [Suspect]
     Active Substance: LACOSAMIDE
     Route: 065

REACTIONS (12)
  - Dehydration [Unknown]
  - Renal disorder [Unknown]
  - Liver disorder [Unknown]
  - Vomiting [Unknown]
  - Dizziness [Unknown]
  - Weight decreased [Unknown]
  - Diarrhoea [Unknown]
  - Eructation [Unknown]
  - Fatigue [Unknown]
  - Feeling cold [Unknown]
  - Hypoaesthesia [Unknown]
  - Product dose omission issue [Unknown]
